FAERS Safety Report 22370808 (Version 2)
Quarter: 2023Q2

REPORT INFORMATION
  Report Type: Spontaneous
  Country: CN (occurrence: CN)
  Receive Date: 20230526
  Receipt Date: 20230607
  Transmission Date: 20230722
  Serious: Yes (Other)
  Sender: FDA-Public Use
  Company Number: CN-SUN PHARMACEUTICAL INDUSTRIES LTD-2023R1-390245

PATIENT
  Age: 6 Year
  Sex: Male

DRUGS (4)
  1. DEXAMETHASONE [Suspect]
     Active Substance: DEXAMETHASONE
     Indication: Chemotherapy
     Dosage: 0.75 MILLIGRAM, QD, ON DAYS 1?7
     Route: 048
  2. VINCRISTINE [Suspect]
     Active Substance: VINCRISTINE
     Indication: Chemotherapy
     Dosage: 1.45 MG 7TH, 15TH, 21TH, AND 29TH DAY
     Route: 042
  3. DAUNORUBICIN [Concomitant]
     Active Substance: DAUNORUBICIN
     Indication: Chemotherapy
     Route: 042
  4. L?asparaginase [Concomitant]
     Indication: Chemotherapy
     Route: 030

REACTIONS (1)
  - Angle closure glaucoma [Recovered/Resolved]
